FAERS Safety Report 21909466 (Version 1)
Quarter: 2023Q1

REPORT INFORMATION
  Report Type: Spontaneous
  Country: US (occurrence: None)
  Receive Date: 20230124
  Receipt Date: 20230124
  Transmission Date: 20230417
  Serious: No
  Sender: FDA-Public Use
  Company Number: None

PATIENT
  Age: 63 Year
  Sex: Female
  Weight: 58.06 kg

DRUGS (2)
  1. ORENCIA [Suspect]
     Active Substance: ABATACEPT
     Indication: Rheumatoid arthritis
     Dosage: INJECT 125MG  SUBCUTANEOUSLY ONCE A WEEK  AS DIRECTED?
     Route: 058
     Dates: start: 202108
  2. ORENCIA [Suspect]
     Active Substance: ABATACEPT
     Indication: Rheumatoid factor positive

REACTIONS (2)
  - COVID-19 [None]
  - Therapy interrupted [None]
